FAERS Safety Report 9435657 (Version 2)
Quarter: 2013Q3

REPORT INFORMATION
  Report Type: Spontaneous
  Country: PH (occurrence: PH)
  Receive Date: 20130801
  Receipt Date: 20130805
  Transmission Date: 20140515
  Serious: Yes (Other)
  Sender: FDA-Public Use
  Company Number: PH-ALLERGAN-1311317US

PATIENT
  Sex: Female

DRUGS (2)
  1. BOTOX? [Suspect]
     Indication: HYPERHIDROSIS
     Dosage: 32 UNITS, SINGLE
     Route: 023
     Dates: start: 201208, end: 201208
  2. BOTOX? [Suspect]
     Dosage: UNK
     Route: 023
     Dates: start: 201207, end: 201207

REACTIONS (2)
  - Sweat gland tumour [Not Recovered/Not Resolved]
  - Swelling [Unknown]
